FAERS Safety Report 9058231 (Version 1)
Quarter: 2013Q1

REPORT INFORMATION
  Report Type: Spontaneous
  Country: US (occurrence: None)
  Receive Date: 20130204
  Receipt Date: 20130204
  Transmission Date: 20140127
  Serious: Yes (Other)
  Sender: FDA-Public Use
  Company Number: None

PATIENT
  Sex: Female
  Weight: 69.4 kg

DRUGS (2)
  1. LEVALBUTEROL [Suspect]
     Indication: CHRONIC OBSTRUCTIVE PULMONARY DISEASE
     Dates: start: 20121126, end: 20121128
  2. LEVALBUTEROL [Suspect]
     Indication: BRONCHITIS CHRONIC
     Dates: start: 20121126, end: 20121128

REACTIONS (2)
  - Respiratory disorder [None]
  - Product substitution issue [None]
